FAERS Safety Report 6145935-7 (Version None)
Quarter: 2009Q2

REPORT INFORMATION
  Report Type: 
  Country: None (occurrence: None)
  Receive Date: 20090407
  Receipt Date: 20090330
  Transmission Date: 20091009
  Serious: Yes (Other)
  Sender: FDA-Public Use
  Company Number: PHHY2009US12032

PATIENT
  Age: 66 Year
  Sex: Male

DRUGS (3)
  1. PAMIDRONATE DISODIUM [Suspect]
     Indication: MULTIPLE MYELOMA
     Dosage: 90 MG, QMO
     Route: 042
  2. METOPROLOL [Concomitant]
  3. ENALAPRIL W/HYDROCHLOROTHIAZIDE [Concomitant]

REACTIONS (12)
  - ACTINOMYCOSIS [None]
  - BONE DISORDER [None]
  - DENTAL OPERATION [None]
  - OSTEONECROSIS [None]
  - OSTEOSCLEROSIS [None]
  - PAIN [None]
  - PERIODONTAL DISEASE [None]
  - PURULENT DISCHARGE [None]
  - SENSITIVITY OF TEETH [None]
  - SWELLING [None]
  - TENDERNESS [None]
  - TOOTH EXTRACTION [None]
